FAERS Safety Report 14171116 (Version 1)
Quarter: 2017Q4

REPORT INFORMATION
  Report Type: Spontaneous
  Country: US (occurrence: US)
  Receive Date: 20171108
  Receipt Date: 20171108
  Transmission Date: 20180321
  Serious: Yes (Other)
  Sender: FDA-Public Use
  Company Number: US-BRACCO-2017US04971

PATIENT
  Sex: Female

DRUGS (5)
  1. GADOLINIUM [Suspect]
     Active Substance: GADOLINIUM
     Indication: NUCLEAR MAGNETIC RESONANCE IMAGING
  2. OMNISCAN [Suspect]
     Active Substance: GADODIAMIDE
     Indication: NUCLEAR MAGNETIC RESONANCE IMAGING
  3. MULTIHANCE [Suspect]
     Active Substance: GADOBENATE DIMEGLUMINE
     Indication: NUCLEAR MAGNETIC RESONANCE IMAGING
     Dosage: UNK, SINGLE
  4. MAGNEVIST [Suspect]
     Active Substance: GADOPENTETATE DIMEGLUMINE
     Indication: NUCLEAR MAGNETIC RESONANCE IMAGING
  5. GADAVIST [Suspect]
     Active Substance: GADOBUTROL
     Indication: NUCLEAR MAGNETIC RESONANCE IMAGING

REACTIONS (17)
  - Scleroderma [Unknown]
  - Emotional distress [Unknown]
  - Anhedonia [Unknown]
  - Asthenia [Unknown]
  - Heart rate increased [Unknown]
  - Gait disturbance [Unknown]
  - Burning sensation [Unknown]
  - Visual impairment [Unknown]
  - Anxiety [Unknown]
  - Joint stiffness [Unknown]
  - Arthralgia [Unknown]
  - Gadolinium deposition disease [Unknown]
  - Mobility decreased [Unknown]
  - Alopecia [Unknown]
  - Injury [Unknown]
  - Pain [Unknown]
  - Deafness [Unknown]
